FAERS Safety Report 8950270 (Version 1)
Quarter: 2012Q4

REPORT INFORMATION
  Report Type: 
  Country: CN (occurrence: CN)
  Receive Date: 20121205
  Receipt Date: 20121205
  Transmission Date: 20130627
  Serious: Yes (Hospitalization)
  Sender: FDA-Public Use
  Company Number: PHHY2012CN108507

PATIENT
  Age: 11 Year
  Sex: Female
  Weight: 20 kg

DRUGS (1)
  1. TEGRETOL [Suspect]
     Indication: EPILEPSY
     Dosage: 0.5 DF, once daily for 1 week
     Route: 048
     Dates: start: 20090422, end: 20090501

REACTIONS (6)
  - Upper respiratory tract infection [Recovered/Resolved]
  - Glucose-6-phosphate dehydrogenase deficiency [Recovered/Resolved]
  - Dermatitis contact [Recovered/Resolved]
  - Pruritus [Recovered/Resolved]
  - Rash [Recovered/Resolved]
  - Pyrexia [Recovered/Resolved]
